FAERS Safety Report 6063172-1 (Version None)
Quarter: 2009Q1

REPORT INFORMATION
  Report Type: 
  Country: None (occurrence: None)
  Receive Date: 20090203
  Receipt Date: 20090126
  Transmission Date: 20090719
  Serious: Yes (Other)
  Sender: FDA-Public Use
  Company Number: NL-ABBOTT-08P-114-0491692-00

PATIENT
  Age: 31 Year
  Sex: Female

DRUGS (3)
  1. DEPAKENE [Suspect]
     Indication: EPILEPSY
     Route: 048
     Dates: start: 19960101, end: 20040402
  2. KEPPRA [Concomitant]
     Indication: EPILEPSY
     Route: 048
     Dates: end: 20081007
  3. FOLIUMZUUR [Concomitant]
     Indication: DRUG USE FOR UNKNOWN INDICATION
     Route: 048

REACTIONS (2)
  - IN VITRO FERTILISATION [None]
  - INFERTILITY FEMALE [None]
